FAERS Safety Report 25979971 (Version 1)
Quarter: 2025Q4

REPORT INFORMATION
  Report Type: Spontaneous
  Country: US (occurrence: None)
  Receive Date: 20251029
  Receipt Date: 20251029
  Transmission Date: 20260118
  Serious: Yes (Other)
  Sender: FDA-CTU
  Company Number: None

PATIENT
  Age: 19 Year
  Sex: Female
  Weight: 54.4 kg

DRUGS (6)
  1. INFED [Suspect]
     Active Substance: IRON DEXTRAN
     Indication: Anaphylactic reaction
     Dosage: OTHER FREQUENCY : ONE TIME;?
     Route: 042
     Dates: start: 20251028, end: 20251028
  2. Oxytocin 30 units/500 mL continuous infusion [Concomitant]
     Dates: start: 20251027
  3. Acetaminophen 650 mg PO once [Concomitant]
     Dates: start: 20251027, end: 20251027
  4. Famotidine 20 mg IV [Concomitant]
     Dates: start: 20251027, end: 20251027
  5. Gentamicin 5 mg/kg Q24H [Concomitant]
     Dates: start: 20251028, end: 20251028
  6. Ibuprofen 600 mg PO Q6H [Concomitant]
     Dates: start: 20251027

REACTIONS (1)
  - Anaphylactic reaction [None]

NARRATIVE: CASE EVENT DATE: 20251028
